FAERS Safety Report 8880314 (Version 2)
Quarter: 2013Q3

REPORT INFORMATION
  Report Type: Spontaneous
  Country: GB (occurrence: GB)
  Receive Date: 20121031
  Receipt Date: 20130927
  Transmission Date: 20140515
  Serious: Yes (Other)
  Sender: FDA-Public Use
  Company Number: PHHY2012GB096988

PATIENT
  Age: 72 Year
  Sex: Male
  Weight: 89 kg

DRUGS (8)
  1. SIMVASTATIN [Suspect]
     Indication: BLOOD CHOLESTEROL INCREASED
     Dosage: 40 MG QD (TAKEN AT NIGHT)
     Route: 048
     Dates: start: 20120904
  2. CETIRIZINE [Concomitant]
     Indication: CARDIAC FAILURE
     Dosage: 10 MG, UNK
     Route: 048
     Dates: start: 2000
  3. CETIRIZINE [Concomitant]
     Indication: CARDIAC FAILURE
  4. FUROSEMIDE [Concomitant]
     Indication: OEDEMA
     Dosage: 80 MG, UNK
     Route: 048
     Dates: start: 20100527
  5. RAMIPRIL [Concomitant]
     Indication: OEDEMA
     Dosage: 5 MG, UNK
     Route: 048
     Dates: start: 20100701
  6. ASPIRIN [Concomitant]
     Indication: PROPHYLAXIS
     Dosage: 75 MG, UNK
     Dates: start: 20050907
  7. TRAMADOL [Concomitant]
     Indication: PAIN
     Dosage: 50 MG, UNK
     Route: 048
     Dates: start: 20120913
  8. PARACETAMOL [Concomitant]
     Indication: PAIN
     Dosage: 1 G QID
     Route: 048
     Dates: start: 20120913

REACTIONS (1)
  - Increased upper airway secretion [Recovered/Resolved]
